FAERS Safety Report 7350378-4 (Version None)
Quarter: 2011Q1

REPORT INFORMATION
  Report Type: 
  Country: None (occurrence: None)
  Receive Date: 20110314
  Receipt Date: 20110307
  Transmission Date: 20110831
  Serious: No
  Sender: FDA-Public Use
  Company Number: US-ELI_LILLY_AND_COMPANY-US201012006344

PATIENT
  Age: 18 Year
  Sex: Female

DRUGS (2)
  1. DEPAKOTE [Concomitant]
  2. ZYPREXA [Suspect]
     Indication: SCHIZOPHRENIA
     Dosage: UNK, UNKNOWN

REACTIONS (1)
  - DRUG EXPOSURE DURING PREGNANCY [None]
